FAERS Safety Report 6555414-0 (Version None)
Quarter: 2010Q1

REPORT INFORMATION
  Report Type: 
  Country: None (occurrence: None)
  Receive Date: 20100128
  Receipt Date: 20091002
  Transmission Date: 20100710
  Serious: No
  Sender: FDA-Public Use
  Company Number: A0812574A

PATIENT
  Sex: Male

DRUGS (1)
  1. WELLBUTRIN XL [Suspect]
     Indication: POST-TRAUMATIC STRESS DISORDER
     Dosage: 150MG PER DAY
     Route: 065
     Dates: start: 20090601

REACTIONS (1)
  - ADVERSE DRUG REACTION [None]
